FAERS Safety Report 6193316-2 (Version None)
Quarter: 2009Q2

REPORT INFORMATION
  Report Type: 
  Country: None (occurrence: None)
  Receive Date: 20090513
  Receipt Date: 20090513
  Transmission Date: 20091009
  Serious: Yes (Other)
  Sender: FDA-Public Use
  Company Number: None

PATIENT
  Age: 60 Year
  Sex: Male
  Weight: 99.7913 kg

DRUGS (1)
  1. XYREM [Suspect]
     Indication: NARCOLEPSY
     Dosage: 4.5GM2 TWICE NIGHTLY BY MOUTH SECOND DOSE 2,5GM
     Dates: start: 20080901, end: 20081101

REACTIONS (6)
  - DEPRESSION [None]
  - FEAR [None]
  - MEMORY IMPAIRMENT [None]
  - PARANOIA [None]
  - PERSONALITY CHANGE [None]
  - SOMNAMBULISM [None]
